FAERS Safety Report 5211644-1 (Version None)
Quarter: 2006Q4

REPORT INFORMATION
  Report Type: 
  Country: None (occurrence: None)
  Receive Date: 20061213
  Receipt Date: 20061213
  Transmission Date: 20070319
  Serious: Yes (Hospitalization)
  Sender: FDA-Public Use
  Company Number: None

PATIENT
  Age: 59 Year
  Sex: Female
  Weight: 58.1511 kg

DRUGS (7)
  1. PREGABALIN  75 MG PFIZER [Suspect]
     Indication: ABDOMINAL PAIN
     Dosage: 75MG  BID  PO
     Route: 048
     Dates: start: 20061108, end: 20061128
  2. PREGABALIN  75 MG PFIZER [Suspect]
     Indication: ADHESION
     Dosage: 75MG  BID  PO
     Route: 048
     Dates: start: 20061108, end: 20061128
  3. SYNTHROID [Concomitant]
  4. PREMARIN [Concomitant]
  5. EFFEXOR [Concomitant]
  6. ULTRAM [Concomitant]
  7. PLACEBO [Suspect]

REACTIONS (5)
  - ALCOHOL USE [None]
  - INTENTIONAL DRUG MISUSE [None]
  - OVERDOSE [None]
  - SUICIDE ATTEMPT [None]
  - TREATMENT NONCOMPLIANCE [None]
